FAERS Safety Report 17505584 (Version 1)
Quarter: 2020Q1

REPORT INFORMATION
  Report Type: Report from Study
  Country: None (occurrence: LB)
  Receive Date: 20200306
  Receipt Date: 20200306
  Transmission Date: 20200409
  Serious: Yes (Other)
  Sender: FDA-Public Use
  Company Number: LB-ABBVIE-20K-093-3253110-00

PATIENT
  Age: 29 Year
  Sex: Female
  Weight: 59 kg

DRUGS (5)
  1. HUMIRA [Suspect]
     Active Substance: ADALIMUMAB
     Indication: HIDRADENITIS
     Route: 058
     Dates: start: 20190502, end: 201911
  2. HUMIRA [Suspect]
     Active Substance: ADALIMUMAB
     Dosage: 80 MG LOADING DOSE
     Route: 058
     Dates: start: 20180731, end: 20180731
  3. HUMIRA [Suspect]
     Active Substance: ADALIMUMAB
     Dosage: 160MG OVER TWO DAYS: 80MG ON 17 JUL 2018/ 80MG ON 18 JUL 2018
     Route: 058
     Dates: start: 20180718, end: 20180718
  4. HUMIRA [Suspect]
     Active Substance: ADALIMUMAB
     Indication: HIDRADENITIS
     Dosage: 160MG OVER TWO DAYS: 80MG ON 17 JUL 2018/ 80MG ON 18 JUL 2018
     Route: 058
     Dates: start: 20180717, end: 20180717
  5. HUMIRA [Suspect]
     Active Substance: ADALIMUMAB
     Route: 058
     Dates: start: 20180814, end: 20190501

REACTIONS (5)
  - Maternal exposure during pregnancy [Unknown]
  - Incorrect dose administered [Unknown]
  - Depressed mood [Not Recovered/Not Resolved]
  - Hidradenitis [Unknown]
  - Abortion spontaneous [Unknown]

NARRATIVE: CASE EVENT DATE: 201807
